FAERS Safety Report 17877349 (Version 3)
Quarter: 2020Q2

REPORT INFORMATION
  Report Type: Report from Study
  Country: US (occurrence: US)
  Receive Date: 20200609
  Receipt Date: 20200625
  Transmission Date: 20200714
  Serious: Yes (Other)
  Sender: FDA-Public Use
  Company Number: US-TAIHO ONCOLOGY  INC-EU-2020-01971

PATIENT
  Sex: Male

DRUGS (2)
  1. LONSURF [Suspect]
     Active Substance: TIPIRACIL HYDROCHLORIDE\TRIFLURIDINE
     Indication: COLORECTAL CANCER
     Dosage: CYCLE 1; CURRENT CYCLE 3
     Route: 048
     Dates: start: 20200331, end: 20200525
  2. OXYCONTIN [Concomitant]
     Active Substance: OXYCODONE HYDROCHLORIDE

REACTIONS (4)
  - Haemoglobin decreased [Recovering/Resolving]
  - Cholelithiasis [Unknown]
  - Cholecystitis acute [Unknown]
  - Disease progression [Unknown]

NARRATIVE: CASE EVENT DATE: 2020
